FAERS Safety Report 10475929 (Version 1)
Quarter: 2014Q3

REPORT INFORMATION
  Report Type: Spontaneous
  Country: US (occurrence: US)
  Receive Date: 20140925
  Receipt Date: 20140925
  Transmission Date: 20150326
  Serious: No
  Sender: FDA-Public Use
  Company Number: US-GLAXOSMITHKLINE-A1043479A

PATIENT
  Sex: Female

DRUGS (16)
  1. AMLODIPINE [Concomitant]
     Active Substance: AMLODIPINE BESYLATE
  2. COLCRYS [Concomitant]
     Active Substance: COLCHICINE
  3. FUROSEMIDE. [Concomitant]
     Active Substance: FUROSEMIDE
  4. OXYCODONE [Concomitant]
     Active Substance: OXYCODONE
  5. MIRALAX [Concomitant]
     Active Substance: POLYETHYLENE GLYCOL 3350
  6. FLOVENT [Concomitant]
     Active Substance: FLUTICASONE PROPIONATE
  7. SPIRONOLACTONE. [Concomitant]
     Active Substance: SPIRONOLACTONE
  8. COUMADIN [Concomitant]
     Active Substance: WARFARIN SODIUM
  9. NIACIN. [Concomitant]
     Active Substance: NIACIN
  10. GLIPIZIDE. [Concomitant]
     Active Substance: GLIPIZIDE
  11. DILTIAZEM [Concomitant]
     Active Substance: DILTIAZEM
  12. CALCIUM [Concomitant]
     Active Substance: CALCIUM
  13. IRON [Concomitant]
     Active Substance: IRON
  14. SEREVENT [Suspect]
     Active Substance: SALMETEROL XINAFOATE
     Indication: DYSPNOEA
     Dosage: 1PUFF TWICE PER DAY
     Route: 055
     Dates: start: 2006
  15. PREVACID [Concomitant]
     Active Substance: LANSOPRAZOLE
  16. MVI [Concomitant]
     Active Substance: VITAMINS

REACTIONS (2)
  - Device ineffective [Unknown]
  - Arthritis [Not Recovered/Not Resolved]
